FAERS Safety Report 16008828 (Version 2)
Quarter: 2019Q2

REPORT INFORMATION
  Report Type: Report from Study
  Country: US (occurrence: US)
  Receive Date: 20190226
  Receipt Date: 20190418
  Transmission Date: 20190711
  Serious: Yes (Hospitalization, Other)
  Sender: FDA-Public Use
  Company Number: US-ACTELION-A-US2018-172509

PATIENT
  Age: 64 Year
  Sex: Male

DRUGS (3)
  1. TRACLEER [Suspect]
     Active Substance: BOSENTAN
     Indication: PULMONARY HYPERTENSION
     Dosage: 62.5 MG, UNK
     Route: 048
     Dates: start: 20180323
  2. ADEMPAS [Concomitant]
     Active Substance: RIOCIGUAT
  3. TRACLEER [Suspect]
     Active Substance: BOSENTAN
     Dosage: 62.5 MG, BID
     Route: 048

REACTIONS (9)
  - Nasal congestion [Not Recovered/Not Resolved]
  - Nasopharyngitis [Not Recovered/Not Resolved]
  - Blood glucose decreased [Recovered/Resolved]
  - Hospitalisation [Unknown]
  - Chest pain [Recovered/Resolved]
  - Product dose omission [Recovered/Resolved]
  - Dizziness [Not Recovered/Not Resolved]
  - Terminal state [Unknown]
  - Headache [Unknown]

NARRATIVE: CASE EVENT DATE: 2018
